FAERS Safety Report 13531462 (Version 1)
Quarter: 2017Q2

REPORT INFORMATION
  Report Type: Spontaneous
  Country: US (occurrence: US)
  Receive Date: 20170510
  Receipt Date: 20170510
  Transmission Date: 20170830
  Serious: Yes (Life-Threatening)
  Sender: FDA-Public Use
  Company Number: US-BION-006291

PATIENT
  Age: 28 Year
  Sex: Male

DRUGS (1)
  1. LOPERAMIDE HYDROCHLORIDE UNKNOWN PRODUCT [Suspect]
     Active Substance: LOPERAMIDE HYDROCHLORIDE

REACTIONS (5)
  - Drug level increased [Unknown]
  - Syncope [Recovered/Resolved]
  - Drug use disorder [Unknown]
  - Ventricular tachycardia [Recovered/Resolved]
  - Tachycardia [Recovered/Resolved]
